FAERS Safety Report 11926058 (Version 2)
Quarter: 2016Q1

REPORT INFORMATION
  Report Type: Spontaneous
  Country: US (occurrence: US)
  Receive Date: 20160119
  Receipt Date: 20160127
  Transmission Date: 20160526
  Serious: Yes (Death, Life-Threatening, Hospitalization)
  Sender: FDA-Public Use
  Company Number: US-HOSPIRA-3138077

PATIENT
  Age: 83 Year
  Sex: Male
  Weight: 90.8 kg

DRUGS (11)
  1. MAXIPIME [Suspect]
     Active Substance: CEFEPIME HYDROCHLORIDE
     Indication: BACTERIAL INFECTION
     Dosage: EVERY 12 HOURS
     Route: 042
     Dates: start: 20151209, end: 20151211
  2. LIPITOR [Concomitant]
     Active Substance: ATORVASTATIN CALCIUM
     Indication: HYPERCHOLESTEROLAEMIA
  3. PLACEBO [Suspect]
     Active Substance: UNSPECIFIED INGREDIENT
     Indication: CARDIOMYOPATHY
     Route: 048
     Dates: start: 20141229, end: 20151212
  4. ANCEF [Suspect]
     Active Substance: CEFAZOLIN SODIUM
     Indication: BACTERIAL INFECTION
     Dosage: EVERY 8 HOURS
     Route: 042
     Dates: start: 20151209, end: 20151213
  5. COZAAR [Concomitant]
     Active Substance: LOSARTAN POTASSIUM
     Indication: HYPERTENSION
     Dates: end: 20151212
  6. NAFCILLIN [Suspect]
     Active Substance: NAFCILLIN\NAFCILLIN SODIUM
     Indication: BACTERIAL INFECTION
     Route: 042
     Dates: start: 20151213, end: 20151215
  7. TAFAMIDIS MEGLUMINE [Suspect]
     Active Substance: TAFAMIDIS MEGLUMINE
     Indication: CARDIOMYOPATHY
     Route: 048
     Dates: start: 20141229, end: 20151212
  8. XARELTO [Concomitant]
     Active Substance: RIVAROXABAN
     Indication: ATRIAL FIBRILLATION
     Dates: end: 20151212
  9. DEMADEX [Concomitant]
     Active Substance: TORSEMIDE
     Indication: CARDIAC FAILURE
     Dates: end: 20151212
  10. CUBICIN [Suspect]
     Active Substance: DAPTOMYCIN
     Indication: BACTERIAL INFECTION
     Dosage: EVERY 24 HOURS
     Route: 042
     Dates: start: 20151208, end: 20151211
  11. HYDROCHLOROTHIAZIDE. [Concomitant]
     Active Substance: HYDROCHLOROTHIAZIDE
     Indication: HYPERTENSION
     Dates: end: 20151212

REACTIONS (2)
  - Septic shock [Fatal]
  - Clostridium difficile colitis [Fatal]

NARRATIVE: CASE EVENT DATE: 20151213
